FAERS Safety Report 4722599-8 (Version None)
Quarter: 2005Q3

REPORT INFORMATION
  Report Type: 
  Country: None (occurrence: None)
  Receive Date: 20050722
  Receipt Date: 20050711
  Transmission Date: 20060218
  Serious: Yes (Other)
  Sender: FDA-Public Use
  Company Number: US-MERCK-0507USA01356

PATIENT
  Age: 62 Year
  Sex: Female

DRUGS (6)
  1. ZOCOR [Suspect]
     Indication: BLOOD CHOLESTEROL INCREASED
     Route: 048
     Dates: start: 20030101, end: 20050101
  2. HYZAAR [Concomitant]
     Route: 048
  3. TOPROL-XL [Concomitant]
     Route: 065
  4. ZYPREXA [Concomitant]
     Route: 065
  5. CLONIDINE [Concomitant]
     Route: 065
  6. POTASSIUM (UNSPECIFIED) [Concomitant]
     Route: 065

REACTIONS (2)
  - ASTHENIA [None]
  - MONOPLEGIA [None]
